FAERS Safety Report 13783667 (Version 2)
Quarter: 2018Q1

REPORT INFORMATION
  Report Type: Spontaneous
  Country: US (occurrence: US)
  Receive Date: 20170724
  Receipt Date: 20180327
  Transmission Date: 20180508
  Serious: Yes (Congenital Anomaly, Other)
  Sender: FDA-Public Use
  Company Number: US-BIOGEN-2014BI092523

PATIENT
  Age: 0 Day

DRUGS (2)
  1. TYSABRI [Suspect]
     Active Substance: NATALIZUMAB
     Indication: MATERNAL EXPOSURE TIMING UNSPECIFIED
     Dosage: INFUSED OVER 1 HOUR
     Route: 064
     Dates: start: 20100322, end: 20131003
  2. TYSABRI [Suspect]
     Active Substance: NATALIZUMAB
     Dosage: INFUSED OVER 1 HOUR
     Route: 064
     Dates: end: 20161101

REACTIONS (5)
  - Williams syndrome [Not Recovered/Not Resolved]
  - Premature baby [Unknown]
  - Congenital cystic kidney disease [Not Recovered/Not Resolved]
  - Foetal exposure timing unspecified [Recovered/Resolved]
  - Trisomy 21 [Not Recovered/Not Resolved]

NARRATIVE: CASE EVENT DATE: 20140301
